FAERS Safety Report 7275579 (Version 6)
Quarter: 2014Q1

REPORT INFORMATION
  Report Type: Spontaneous
  Country: US (occurrence: US)
  Receive Date: 20100211
  Receipt Date: 20140109
  Transmission Date: 20141002
  Serious: Yes (Other)
  Sender: FDA-Public Use
  Company Number: US-BAYER-201013286NA

PATIENT
  Age: 29 Year
  Sex: Female
  Weight: 54.55 kg

DRUGS (35)
  1. YASMIN [Suspect]
     Indication: MENORRHAGIA
     Route: 048
     Dates: start: 20071204, end: 20071215
  2. YASMIN [Suspect]
     Indication: MENORRHAGIA
     Route: 048
     Dates: start: 20081028, end: 200812
  3. YASMIN [Suspect]
     Indication: MENORRHAGIA
     Dosage: UNK
     Dates: end: 2001
  4. YASMIN [Suspect]
     Indication: MENORRHAGIA
     Dosage: UNK
     Dates: end: 20040901
  5. YAZ [Suspect]
     Indication: MENORRHAGIA
     Dosage: AS USED DOSE: UNK
     Route: 048
     Dates: start: 200801, end: 20081028
  6. OCELLA [Suspect]
     Indication: MENORRHAGIA
     Dosage: UNK
     Route: 048
     Dates: start: 200804, end: 20091115
  7. CLINDESSE [Concomitant]
     Dosage: WITH REFILL 3 MONTHS
     Route: 061
     Dates: start: 200801
  8. LOESTRIN FE [Concomitant]
     Indication: ORAL CONTRACEPTION
     Route: 048
     Dates: start: 20091217
  9. LEXAPRO [Concomitant]
  10. NORVASC [Concomitant]
  11. ACYCLOVIR [ACICLOVIR] [Concomitant]
     Dates: start: 200802
  12. ACYCLOVIR [ACICLOVIR] [Concomitant]
     Dates: start: 200812
  13. AMOXICILLIN [Concomitant]
     Dates: start: 200812
  14. CELEXA [Concomitant]
     Dates: start: 200812
  15. DICYCLOMINE [Concomitant]
     Dates: start: 200809
  16. DICYCLOMINE [Concomitant]
     Dates: start: 200812
  17. PRENATAL VITAMINS [Concomitant]
  18. DIFLUCAN [Concomitant]
     Dates: start: 200809, end: 20081215
  19. DOXYCYCLINE HYCLATE [Concomitant]
     Dates: start: 200809, end: 20081215
  20. FISH OIL [Concomitant]
     Dates: start: 200812
  21. HYDROCODONE W/APAP [Concomitant]
     Dates: start: 200802
  22. CYCLOBENZAPRINE [Concomitant]
     Dates: start: 200803
  23. MULTIVITAMINS [Concomitant]
     Dates: start: 200808
  24. DOXYCYCLINE [Concomitant]
     Dates: start: 200808
  25. DERMATOLOGICALS [Concomitant]
  26. FLUTICASONE [Concomitant]
     Dates: start: 200802
  27. CEPHALEXIN [Concomitant]
     Dates: start: 200802
  28. CITALOPRAM [Concomitant]
     Dates: start: 200808
  29. FLUCONAZOLE [Concomitant]
     Dates: start: 200808
  30. FEXOFENADINE [Concomitant]
     Dates: start: 200901
  31. FLUZONE [Concomitant]
     Dates: start: 200809
  32. TRIAMCINOLONE [Concomitant]
     Dates: start: 200901
  33. PRENATAL VITAMINS [VIT C,VIT H,MIN NOS,VIT PP,RETINOL,VIT E,VIT B [Concomitant]
  34. MULTIVITAMIN [Concomitant]
     Dates: start: 200808
  35. TETREX [Concomitant]
     Dates: start: 200901

REACTIONS (3)
  - Cholecystitis chronic [Recovering/Resolving]
  - Cholelithiasis [Recovering/Resolving]
  - Abdominal pain upper [Recovering/Resolving]
